FAERS Safety Report 15097234 (Version 1)
Quarter: 2018Q3

REPORT INFORMATION
  Report Type: Spontaneous
  Country: SK (occurrence: SK)
  Receive Date: 20180702
  Receipt Date: 20180702
  Transmission Date: 20181010
  Serious: Yes (Other)
  Sender: FDA-Public Use
  Company Number: SK-ELI_LILLY_AND_COMPANY-SK201806009816

PATIENT
  Age: 69 Year
  Sex: Female

DRUGS (2)
  1. ABRAXANE [Suspect]
     Active Substance: PACLITAXEL
     Indication: PANCREATIC CARCINOMA METASTATIC
     Dosage: UNK UNK, UNKNOWN
     Route: 041
     Dates: start: 20160419, end: 201701
  2. GEMCITABINE HYDROCHLORIDE. [Suspect]
     Active Substance: GEMCITABINE HYDROCHLORIDE
     Indication: PANCREATIC CARCINOMA METASTATIC
     Dosage: UNK UNK, UNKNOWN
     Route: 065
     Dates: start: 20160419, end: 201701

REACTIONS (5)
  - Neuropathy peripheral [Unknown]
  - Venous thrombosis [Recovered/Resolved]
  - Weight increased [Unknown]
  - Off label use [Recovered/Resolved]
  - Genital neoplasm malignant female [Unknown]

NARRATIVE: CASE EVENT DATE: 201701
